FAERS Safety Report 10569191 (Version 1)
Quarter: 2014Q4

REPORT INFORMATION
  Report Type: Spontaneous
  Country: TW (occurrence: TW)
  Receive Date: 20141106
  Receipt Date: 20141106
  Transmission Date: 20150529
  Serious: Yes (Death)
  Sender: FDA-Public Use
  Company Number: PHHY2014TW142087

PATIENT
  Age: 41 Year
  Sex: Male

DRUGS (3)
  1. CISPLATIN. [Concomitant]
     Active Substance: CISPLATIN
     Indication: OESOPHAGEAL CARCINOMA
     Dosage: 35 MG/M2, QD, ON DAY 1 AND DAY 8
     Route: 042
  2. DEXAMETHASONE. [Suspect]
     Active Substance: DEXAMETHASONE
     Indication: THROMBOCYTOPENIA
     Dosage: 4 MG, BID
     Route: 042
  3. ETOPOSIDE. [Concomitant]
     Active Substance: ETOPOSIDE
     Indication: OESOPHAGEAL CARCINOMA
     Dosage: 20 MG/M2, QD ON DAY 1 TO DAY 14
     Route: 042

REACTIONS (4)
  - Haematemesis [Fatal]
  - Thrombocytopenia [Unknown]
  - Upper gastrointestinal haemorrhage [Fatal]
  - Drug ineffective [Unknown]
